FAERS Safety Report 10271860 (Version 1)
Quarter: 2014Q3

REPORT INFORMATION
  Report Type: Spontaneous
  Country: JP (occurrence: JP)
  Receive Date: 20140702
  Receipt Date: 20140702
  Transmission Date: 20150326
  Serious: Yes (Other)
  Sender: FDA-Public Use
  Company Number: PHHY2014JP078465

PATIENT
  Age: 71 Year
  Sex: Female
  Weight: 44 kg

DRUGS (3)
  1. LIDOCAINE. [Suspect]
     Active Substance: LIDOCAINE
     Indication: TRIGEMINAL NEURALGIA
     Dosage: 100 MG, QW
  2. CARBAMAZEPINE. [Concomitant]
     Active Substance: CARBAMAZEPINE
     Indication: TRIGEMINAL NEURALGIA
     Dosage: 400 MG, DAILY
  3. MAGNESIUM [Suspect]
     Active Substance: MAGNESIUM
     Indication: TRIGEMINAL NEURALGIA
     Dosage: 1.2 G, QW
     Route: 042

REACTIONS (2)
  - Trigeminal neuralgia [Recovered/Resolved]
  - Disease recurrence [Recovered/Resolved]
